FAERS Safety Report 8646073 (Version 3)
Quarter: 2012Q4

REPORT INFORMATION
  Report Type: 
  Country: DE (occurrence: DE)
  Receive Date: 20120702
  Receipt Date: 20121119
  Transmission Date: 20130627
  Serious: Yes (Death, Hospitalization)
  Sender: FDA-Public Use
  Company Number: DE-JNJFOC-20120608225

PATIENT
  Age: 75 Year
  Sex: Female
  Weight: 72 kg

DRUGS (7)
  1. XARELTO [Suspect]
     Indication: PELVIC VENOUS THROMBOSIS
     Route: 048
     Dates: start: 201205, end: 20120612
  2. XARELTO [Suspect]
     Indication: PELVIC VENOUS THROMBOSIS
     Route: 048
     Dates: start: 20120530, end: 2012
  3. XARELTO [Suspect]
     Indication: DEEP VEIN THROMBOSIS
     Route: 048
     Dates: start: 201205, end: 20120612
  4. XARELTO [Suspect]
     Indication: DEEP VEIN THROMBOSIS
     Route: 048
     Dates: start: 20120530, end: 2012
  5. KEPPRA [Concomitant]
     Route: 065
     Dates: end: 20120612
  6. EBIXA [Concomitant]
     Route: 048
     Dates: end: 20120612
  7. HEPARIN [Concomitant]
     Route: 065

REACTIONS (8)
  - Cerebral haemorrhage [Fatal]
  - Subdural haematoma [Fatal]
  - Sopor [Unknown]
  - Somnolence [Unknown]
  - Agitation [Unknown]
  - Restlessness [Unknown]
  - Staring [Unknown]
  - Screaming [Unknown]
